FAERS Safety Report 7080889-0 (Version None)
Quarter: 2010Q4

REPORT INFORMATION
  Report Type: 
  Country: None (occurrence: None)
  Receive Date: 20101103
  Receipt Date: 20101028
  Transmission Date: 20110411
  Serious: Yes (Other)
  Sender: FDA-Public Use
  Company Number: US-BAYER-201022710BCC

PATIENT
  Age: 12 Year

DRUGS (1)
  1. ASPIRIN [Suspect]
     Indication: HAEMORRHAGE
     Route: 048

REACTIONS (1)
  - APPARENT DEATH [None]
